FAERS Safety Report 4527427-1 (Version None)
Quarter: 2004Q4

REPORT INFORMATION
  Report Type: 
  Country: None (occurrence: None)
  Receive Date: 20041130
  Receipt Date: 20040908
  Transmission Date: 20050328
  Serious: No
  Sender: FDA-Public Use
  Company Number: WAES 0409USA00683

PATIENT
  Age: 75 Year
  Sex: Male
  Weight: 84.369 kg

DRUGS (6)
  1. ZETIA [Suspect]
     Indication: HYPERCHOLESTEROLAEMIA
     Dosage: 10 MG/DAILY/PO
     Route: 048
     Dates: start: 20040818, end: 20040831
  2. GLUCOVANCE [Concomitant]
  3. PROTONIX [Concomitant]
  4. TRICOR [Concomitant]
  5. ZOCOR [Concomitant]
  6. ATENOLOL [Concomitant]

REACTIONS (3)
  - ASPARTATE AMINOTRANSFERASE INCREASED [None]
  - BLOOD BILIRUBIN INCREASED [None]
  - JAUNDICE [None]
